FAERS Safety Report 8559327 (Version 3)
Quarter: 2012Q4

REPORT INFORMATION
  Report Type: 
  Country: PT (occurrence: PT)
  Receive Date: 20120511
  Receipt Date: 20121231
  Transmission Date: 20130627
  Serious: Yes (Other)
  Sender: FDA-Public Use
  Company Number: PT-ROCHE-1065762

PATIENT
  Age: 63 Year
  Sex: Female

DRUGS (10)
  1. MABTHERA [Suspect]
     Indication: RHEUMATOID ARTHRITIS
     Route: 042
  2. MABTHERA [Suspect]
     Route: 042
     Dates: end: 201104
  3. ROACTEMRA [Suspect]
     Indication: RHEUMATOID ARTHRITIS
     Route: 065
     Dates: start: 201110
  4. NAPROXEN [Suspect]
     Indication: RHEUMATOID ARTHRITIS
     Route: 065
     Dates: start: 201110, end: 201111
  5. DEFLAZACORT [Concomitant]
     Indication: RHEUMATOID ARTHRITIS
     Route: 065
     Dates: start: 201110
  6. DEFLAZACORT [Concomitant]
     Route: 065
  7. OMEPRAZOLE [Concomitant]
     Indication: PROPHYLAXIS
     Route: 048
     Dates: start: 200212, end: 201204
  8. PREDNISOLONE [Concomitant]
     Indication: RHEUMATOID ARTHRITIS
     Route: 048
     Dates: start: 200212, end: 201106
  9. METHOTREXATE [Concomitant]
     Indication: RHEUMATOID ARTHRITIS
     Route: 048
     Dates: start: 201109, end: 201202
  10. METHOTREXATE [Concomitant]
     Route: 058
     Dates: start: 201108, end: 201109

REACTIONS (9)
  - Arthritis [Recovered/Resolved]
  - Musculoskeletal stiffness [Recovering/Resolving]
  - Fatigue [Recovered/Resolved]
  - Anaemia [Recovering/Resolving]
  - Hepatic enzyme increased [Unknown]
  - Blood cholesterol increased [Unknown]
  - Oedema [Recovered/Resolved]
  - Red blood cell sedimentation rate increased [Recovering/Resolving]
  - Rheumatoid arthritis [Recovering/Resolving]
